FAERS Safety Report 25151947 (Version 1)
Quarter: 2025Q2

REPORT INFORMATION
  Report Type: Report from Study
  Country: US (occurrence: US)
  Receive Date: 20250402
  Receipt Date: 20250402
  Transmission Date: 20250717
  Serious: No
  Sender: SUNOVION
  Company Number: US-SUMITOMO PHARMA SWITZERLAND GMBH-2025SPA002771

PATIENT

DRUGS (1)
  1. ORGOVYX [Suspect]
     Active Substance: RELUGOLIX
     Indication: Prostate cancer
     Dosage: 120 MG, QD
     Route: 048
     Dates: start: 20250228

REACTIONS (8)
  - Muscle atrophy [Unknown]
  - Disturbance in attention [Unknown]
  - Fat tissue increased [Unknown]
  - Erectile dysfunction [Unknown]
  - Libido decreased [Unknown]
  - Asthenia [Unknown]
  - Hot flush [Unknown]
  - Incorrect dose administered [Unknown]
